FAERS Safety Report 7860420-X (Version None)
Quarter: 2011Q4

REPORT INFORMATION
  Report Type: 
  Country: None (occurrence: None)
  Receive Date: 20111027
  Receipt Date: 20111017
  Transmission Date: 20120403
  Serious: Yes (Hospitalization)
  Sender: FDA-Public Use
  Company Number: PHHY2011CA92943

PATIENT
  Sex: Female

DRUGS (1)
  1. EXJADE [Suspect]
     Indication: THALASSAEMIA
     Dosage: 2000 MG
     Route: 048
     Dates: start: 20080101

REACTIONS (2)
  - INTRACRANIAL ANEURYSM [None]
  - SERUM FERRITIN DECREASED [None]
